FAERS Safety Report 24524549 (Version 2)
Quarter: 2024Q4

REPORT INFORMATION
  Report Type: Spontaneous
  Country: US (occurrence: US)
  Receive Date: 20241019
  Receipt Date: 20241113
  Transmission Date: 20250115
  Serious: No
  Sender: ABBVIE
  Company Number: US-ABBVIE-5970492

PATIENT
  Age: 80 Year
  Sex: Female
  Weight: 63 kg

DRUGS (2)
  1. BOTOX [Suspect]
     Active Substance: ONABOTULINUMTOXINA
     Indication: Hypertonic bladder
     Dosage: TIME INTERVAL: AS NECESSARY
     Route: 043
     Dates: start: 2023, end: 2023
  2. BOTOX [Suspect]
     Active Substance: ONABOTULINUMTOXINA
     Indication: Hypertonic bladder
     Dosage: TIME INTERVAL: AS NECESSARY: BOTOX THERAPEUTIC
     Route: 065

REACTIONS (3)
  - Hot flush [Not Recovered/Not Resolved]
  - Drug ineffective [Not Recovered/Not Resolved]
  - Off label use [Not Recovered/Not Resolved]

NARRATIVE: CASE EVENT DATE: 20240101
